FAERS Safety Report 20181118 (Version 1)
Quarter: 2021Q4

REPORT INFORMATION
  Report Type: Spontaneous
  Country: US (occurrence: US)
  Receive Date: 20211214
  Receipt Date: 20211214
  Transmission Date: 20220303
  Serious: Yes (Other)
  Sender: FDA-Public Use
  Company Number: US-STRIDES ARCOLAB LIMITED-2021SP027727

PATIENT
  Age: 59 Year
  Sex: Female

DRUGS (17)
  1. PREDNISOLONE [Suspect]
     Active Substance: PREDNISOLONE
     Indication: Diffuse large B-cell lymphoma
     Dosage: UNK, 6 CYCLES (DA-R-EPOCH)
     Route: 065
     Dates: start: 201303
  2. RITUXIMAB [Suspect]
     Active Substance: RITUXIMAB
     Indication: Diffuse large B-cell lymphoma
     Dosage: UNK, 6 CYCLES (DA-R-EPOCH)
     Route: 065
     Dates: start: 201303
  3. RITUXIMAB [Suspect]
     Active Substance: RITUXIMAB
     Dosage: UNK, 3 CYCLES (R-ICE) SALVAGE THERAPY
     Route: 065
     Dates: start: 201503
  4. RITUXIMAB [Suspect]
     Active Substance: RITUXIMAB
     Dosage: UNK, 4 CYCLES OF SALVAGE
     Route: 065
     Dates: start: 201805
  5. ETOPOSIDE [Suspect]
     Active Substance: ETOPOSIDE
     Indication: Diffuse large B-cell lymphoma
     Dosage: UNK, 6 CYCLES (DA-R-EPOCH)
     Route: 065
     Dates: start: 201303
  6. ETOPOSIDE [Suspect]
     Active Substance: ETOPOSIDE
     Dosage: UNK, 3 CYCLES,(R-ICE) SALVAGE THERAPY
     Route: 065
     Dates: start: 201503
  7. VINCRISTINE [Suspect]
     Active Substance: VINCRISTINE
     Indication: Diffuse large B-cell lymphoma
     Dosage: UNK, 6 CYCLES (DA-R-EPOCH)
     Route: 065
     Dates: start: 201303
  8. CYCLOPHOSPHAMIDE [Suspect]
     Active Substance: CYCLOPHOSPHAMIDE
     Indication: Diffuse large B-cell lymphoma
     Dosage: UNK, 6 CYCLES (DA-R-EPOCH)
     Route: 065
     Dates: start: 201303
  9. DOXORUBICIN [Suspect]
     Active Substance: DOXORUBICIN
     Indication: Diffuse large B-cell lymphoma
     Dosage: UNK, 6 CYCLES (DA-R-EPOCH)
     Route: 065
     Dates: start: 201303
  10. IFOSFAMIDE [Suspect]
     Active Substance: IFOSFAMIDE
     Indication: Diffuse large B-cell lymphoma
     Dosage: UNK, 3 CYCLES, (R-ICE) SALVAGE THERAPY
     Route: 065
     Dates: start: 201503
  11. CARBOPLATIN [Suspect]
     Active Substance: CARBOPLATIN
     Indication: Diffuse large B-cell lymphoma
     Dosage: UNK, 3 CYCLES, (R-ICE) SALVAGE THERAPY
     Route: 065
     Dates: start: 201503
  12. TAFASITAMAB [Suspect]
     Active Substance: TAFASITAMAB
     Indication: Diffuse large B-cell lymphoma
     Dosage: UNK, 6 CYCLES
     Route: 065
     Dates: start: 201710
  13. LENALIDOMIDE [Suspect]
     Active Substance: LENALIDOMIDE
     Indication: Diffuse large B-cell lymphoma
     Dosage: UNK, 6 CYCLES
     Route: 065
     Dates: start: 201710
  14. GEMCITABINE [Suspect]
     Active Substance: GEMCITABINE
     Indication: Diffuse large B-cell lymphoma
     Dosage: UNK, 4 CYCLES OF SALVAGE CHEMOTHERAPY
     Route: 065
     Dates: start: 201805
  15. OXALIPLATIN [Suspect]
     Active Substance: OXALIPLATIN
     Indication: Diffuse large B-cell lymphoma
     Dosage: UNK, 4 CYCLES OF SALVAGE CHEMOTHERAPY
     Route: 065
     Dates: start: 201805
  16. AZACITIDINE [Suspect]
     Active Substance: AZACITIDINE
     Indication: Diffuse large B-cell lymphoma
     Dosage: UNK
     Route: 065
     Dates: start: 202005
  17. AXICABTAGENE CILOLEUCEL [Concomitant]
     Active Substance: AXICABTAGENE CILOLEUCEL
     Indication: Diffuse large B-cell lymphoma
     Dosage: UNK, CAR T-CELL THERAPY
     Route: 065
     Dates: start: 201809

REACTIONS (1)
  - Treatment failure [Unknown]
